FAERS Safety Report 24194732 (Version 1)
Quarter: 2024Q3

REPORT INFORMATION
  Report Type: Spontaneous
  Country: DE (occurrence: DE)
  Receive Date: 20240809
  Receipt Date: 20240809
  Transmission Date: 20241017
  Serious: Yes (Hospitalization, Other)
  Sender: TEVA
  Company Number: None

PATIENT
  Age: 60 Year
  Sex: Female

DRUGS (1)
  1. PREDNISOLONE [Suspect]
     Active Substance: PREDNISOLONE
     Indication: Respiratory tract infection
     Route: 048

REACTIONS (7)
  - Angle closure glaucoma [Recovered/Resolved with Sequelae]
  - Photophobia [Recovered/Resolved with Sequelae]
  - Ocular discomfort [Recovered/Resolved with Sequelae]
  - Chills [Recovered/Resolved with Sequelae]
  - Headache [Recovered/Resolved with Sequelae]
  - Shock [Recovered/Resolved with Sequelae]
  - Intraocular pressure increased [Recovered/Resolved with Sequelae]
